FAERS Safety Report 6235781-8 (Version None)
Quarter: 2009Q2

REPORT INFORMATION
  Report Type: 
  Country: None (occurrence: None)
  Receive Date: 20090619
  Receipt Date: 20090612
  Transmission Date: 20091009
  Serious: Yes (Hospitalization)
  Sender: FDA-Public Use
  Company Number: DE-PFIZER INC-2009213646

PATIENT
  Age: 68 Year

DRUGS (6)
  1. IRINOTECAN HCL [Suspect]
     Indication: COLORECTAL CANCER METASTATIC
     Dosage: 277 MG 1X/DAY, EVERY 2 WEEKS
     Route: 042
     Dates: start: 20090305
  2. FLUOROURACIL [Suspect]
     Indication: COLORECTAL CANCER METASTATIC
     Dosage: 4312 MG 1X/DAY, EVERY 2 WEEKS
     Route: 042
     Dates: start: 20090305
  3. FOLINIC ACID [Suspect]
     Indication: COLORECTAL CANCER METASTATIC
     Dosage: 616 MG 1X/DAY, EVERY 2 WEEKS
     Route: 042
     Dates: start: 20090305
  4. CETUXIMAB [Suspect]
     Indication: COLORECTAL CANCER METASTATIC
     Dosage: 385 MG 1X/DAY, EVERY 2 WEEKS
     Route: 042
     Dates: start: 20090305, end: 20090506
  5. TORSEMIDE [Concomitant]
     Dosage: 10 MG, UNK
     Route: 048
     Dates: start: 20090416
  6. ESIDRIX [Concomitant]
     Dosage: 12.5 MG, UNK
     Route: 048
     Dates: start: 20090506

REACTIONS (1)
  - ECZEMA [None]
